FAERS Safety Report 8625677-6 (Version None)
Quarter: 2012Q3

REPORT INFORMATION
  Report Type: 
  Country: None (occurrence: None)
  Receive Date: 20120827
  Receipt Date: 20120821
  Transmission Date: 20120928
  Serious: Yes (Hospitalization)
  Sender: FDA-Public Use
  Company Number: CL-ROCHE-1105923

PATIENT
  Sex: Male
  Weight: 65 kg

DRUGS (3)
  1. CHEMOTHERAPY (UNK INGREDIENTS) [Suspect]
     Indication: GASTRIC CANCER
     Route: 042
     Dates: start: 20120511, end: 20120814
  2. METFORMIN HCL [Concomitant]
     Indication: DIABETES MELLITUS
     Route: 048
  3. XELODA [Suspect]
     Indication: GASTRIC CANCER
     Dosage: 1000 MG IN THE MORNING AND 1000 MG AT NIGHT
     Route: 048
     Dates: start: 20120511, end: 20120814

REACTIONS (1)
  - OESOPHAGEAL STENOSIS [None]
